FAERS Safety Report 4896585-1 (Version None)
Quarter: 2005Q4

REPORT INFORMATION
  Report Type: 
  Country: None (occurrence: None)
  Receive Date: 20051223
  Receipt Date: 20051031
  Transmission Date: 20060501
  Serious: No
  Sender: FDA-Public Use
  Company Number: 05P-163-0316020-00

PATIENT
  Age: 63 Year
  Sex: Female
  Weight: 48.0813 kg

DRUGS (4)
  1. HUMIRA [Suspect]
     Indication: RHEUMATOID ARTHRITIS
     Dosage: 40 MG, 1 IN 2 WK, SUBCUTANEOUS
     Route: 058
     Dates: start: 20050701
  2. FAMOTIDINE [Concomitant]
  3. ISONIAZID [Concomitant]
  4. LORAZEPAM [Concomitant]

REACTIONS (1)
  - HEADACHE [None]
